FAERS Safety Report 26153147 (Version 1)
Quarter: 2025Q4

REPORT INFORMATION
  Report Type: Spontaneous
  Country: US (occurrence: US)
  Receive Date: 20251214
  Receipt Date: 20251214
  Transmission Date: 20260117
  Serious: Yes (Other)
  Sender: SANOFI AVENTIS
  Company Number: US-SANOFI-02745001

PATIENT
  Age: 73 Year
  Sex: Male

DRUGS (1)
  1. LANTUS SOLOSTAR [Suspect]
     Active Substance: INSULIN GLARGINE
     Indication: Type 1 diabetes mellitus
     Dosage: 28 IU, QD

REACTIONS (2)
  - Cerebrovascular accident [Unknown]
  - Memory impairment [Unknown]
